FAERS Safety Report 9182451 (Version 1)
Quarter: 2013Q1

REPORT INFORMATION
  Report Type: Spontaneous
  Country: US (occurrence: US)
  Receive Date: 20130322
  Receipt Date: 20130322
  Transmission Date: 20140127
  Serious: Yes (Other)
  Sender: FDA-Public Use
  Company Number: US-BRISTOL-MYERS SQUIBB COMPANY-16756884

PATIENT
  Age: 48 Year
  Sex: Male

DRUGS (4)
  1. ERBITUX SOLN FOR INF [Suspect]
     Indication: TONSIL CANCER
     Dosage: 752MG,OVER 2 HRS, LOADING DOSE,RESTAT WITH 50ML/HR,INCREASED TO 94ML
     Route: 042
     Dates: start: 20120705, end: 20120705
  2. LORTAB [Concomitant]
     Dosage: 1DF=7.5/325 UNITS NOS?Q6HRS
  3. DOXYCYCLINE [Concomitant]
     Route: 048
  4. METHADONE [Concomitant]

REACTIONS (1)
  - Hypersensitivity [Recovered/Resolved]
